FAERS Safety Report 25541086 (Version 3)
Quarter: 2025Q3

REPORT INFORMATION
  Report Type: Report from Study
  Country: US (occurrence: US)
  Receive Date: 20250710
  Receipt Date: 20250917
  Transmission Date: 20251021
  Serious: No
  Sender: ABBVIE
  Company Number: US-ABBVIE-6243780

PATIENT
  Age: 64 Year
  Sex: Female
  Weight: 79.378 kg

DRUGS (3)
  1. SKYRIZI [Suspect]
     Active Substance: RISANKIZUMAB-RZAA
     Indication: Psoriatic arthropathy
     Route: 058
     Dates: start: 2023, end: 2025
  2. INDOMETHACIN [Concomitant]
     Active Substance: INDOMETHACIN
     Indication: Inflammation
  3. MOUNJARO [Concomitant]
     Active Substance: TIRZEPATIDE
     Indication: Weight abnormal

REACTIONS (8)
  - Candida infection [Not Recovered/Not Resolved]
  - Arthralgia [Recovered/Resolved]
  - Urinary tract infection [Recovering/Resolving]
  - Osteoarthritis [Recovering/Resolving]
  - Pollakiuria [Not Recovered/Not Resolved]
  - Urinary tract infection [Recovered/Resolved]
  - Medical device pain [Recovered/Resolved]
  - Bone disorder [Unknown]

NARRATIVE: CASE EVENT DATE: 20240101
